FAERS Safety Report 7365957-8 (Version None)
Quarter: 2011Q1

REPORT INFORMATION
  Report Type: 
  Country: None (occurrence: None)
  Receive Date: 20110322
  Receipt Date: 20110308
  Transmission Date: 20110831
  Serious: Yes (Hospitalization)
  Sender: FDA-Public Use
  Company Number: US-ACTELION-A-US2010-39198

PATIENT

DRUGS (2)
  1. TRACLEER [Suspect]
     Indication: PULMONARY ARTERIAL HYPERTENSION
     Dosage: 125 MG, BID
     Route: 048
     Dates: start: 20080701
  2. REVATIO [Concomitant]

REACTIONS (4)
  - PULMONARY ARTERIAL PRESSURE INCREASED [None]
  - INFLUENZA LIKE ILLNESS [None]
  - CONDITION AGGRAVATED [None]
  - CHEST PAIN [None]
